FAERS Safety Report 7329485-8 (Version None)
Quarter: 2011Q1

REPORT INFORMATION
  Report Type: 
  Country: None (occurrence: None)
  Receive Date: 20110303
  Receipt Date: 20110223
  Transmission Date: 20110831
  Serious: Yes (Hospitalization)
  Sender: FDA-Public Use
  Company Number: FR-TEVA-268837ISR

PATIENT
  Sex: Male
  Weight: 59 kg

DRUGS (8)
  1. DEXAMETHASONE [Suspect]
     Dates: start: 20100519
  2. TAMSULOSIN HYDROCHLORIDE [Concomitant]
     Indication: BENIGN PROSTATIC HYPERPLASIA
     Route: 048
  3. LENALIDOMIDE [Suspect]
     Indication: MULTIPLE MYELOMA
     Route: 048
     Dates: start: 20100519
  4. AMOXICILLIN [Concomitant]
     Indication: PRODUCT USED FOR UNKNOWN INDICATION
     Route: 048
  5. ACETYLSALICYLATE LYSINE [Concomitant]
     Indication: THROMBOSIS PROPHYLAXIS
     Route: 048
  6. VALACICLOVIR [Concomitant]
     Indication: PROPHYLAXIS
     Route: 048
  7. LENALIDOMIDE [Suspect]
     Route: 048
     Dates: start: 20101201, end: 20101215
  8. DEXAMETHASONE [Suspect]
     Indication: MULTIPLE MYELOMA
     Dates: start: 20101201, end: 20101215

REACTIONS (1)
  - PROSTATITIS [None]
